FAERS Safety Report 8845955 (Version 2)
Quarter: 2012Q4

REPORT INFORMATION
  Report Type: Report from Study
  Country: US (occurrence: US)
  Receive Date: 20121017
  Receipt Date: 20121109
  Transmission Date: 20130627
  Serious: Yes (Other)
  Sender: FDA-Public Use
  Company Number: US-ROCHE-1104880

PATIENT
  Age: 50 Year
  Sex: Female
  Weight: 53.12 kg

DRUGS (11)
  1. VISMODEGIB [Suspect]
     Indication: BASAL CELL CARCINOMA
     Route: 048
     Dates: start: 20120802, end: 20120817
  2. ACIPHEX [Concomitant]
     Route: 065
  3. CLONAZEPAM [Concomitant]
     Route: 065
  4. FOLIC ACID [Concomitant]
     Route: 065
  5. METHOTREXATE [Concomitant]
     Route: 065
  6. NASACORT [Concomitant]
     Route: 065
  7. FLEXERIL [Concomitant]
     Route: 065
  8. PREMARIN [Concomitant]
     Route: 065
  9. VITAMIN D [Concomitant]
     Route: 065
  10. PRISTIQ [Concomitant]
     Route: 065
  11. TYLENOL [Concomitant]
     Route: 065

REACTIONS (12)
  - Nausea [Recovered/Resolved]
  - Back pain [Recovered/Resolved]
  - Gastrooesophageal reflux disease [Recovered/Resolved]
  - Dysgeusia [Recovered/Resolved]
  - Chills [Recovered/Resolved]
  - Malaise [Unknown]
  - Headache [Unknown]
  - Alopecia [Not Recovered/Not Resolved]
  - Nausea [Recovered/Resolved]
  - Ageusia [Recovered/Resolved]
  - Fatigue [Recovered/Resolved]
  - Influenza like illness [Recovered/Resolved]
